FAERS Safety Report 11137495 (Version 1)
Quarter: 2015Q2

REPORT INFORMATION
  Report Type: Spontaneous
  Country: FR (occurrence: FR)
  Receive Date: 20150526
  Receipt Date: 20150526
  Transmission Date: 20150821
  Serious: Yes (Hospitalization)
  Sender: FDA-Public Use
  Company Number: FR-GE HEALTHCARE MEDICAL DIAGNOSTICS-OMPQ-PR-1505S-0831

PATIENT
  Age: 82 Year
  Sex: Female

DRUGS (10)
  1. OMNIPAQUE [Suspect]
     Active Substance: IOHEXOL
     Indication: ADRENAL MASS
     Dosage: DOSE NOT REPORTED
     Route: 065
     Dates: start: 20141120, end: 20141120
  2. UVEDOSE [Concomitant]
     Active Substance: CHOLECALCIFEROL
  3. MIFLONIL [Concomitant]
     Active Substance: BUDESONIDE
  4. HBPM [Concomitant]
  5. NOROXINE [Suspect]
     Active Substance: NORFLOXACIN
     Indication: URINARY TRACT INFECTION
     Route: 042
     Dates: start: 20141118, end: 20141125
  6. CHONDROSULF [Concomitant]
     Active Substance: CHONDROITIN SULFATE (CHICKEN)
  7. XARELTO [Concomitant]
     Active Substance: RIVAROXABAN
  8. LOSARTAN [Concomitant]
     Active Substance: LOSARTAN
  9. OMNIPAQUE [Suspect]
     Active Substance: IOHEXOL
     Indication: DIAGNOSTIC PROCEDURE
  10. MONOTILDIEM [Concomitant]
     Active Substance: DILTIAZEM

REACTIONS (1)
  - Urticaria [Recovered/Resolved]

NARRATIVE: CASE EVENT DATE: 20141121
